FAERS Safety Report 24383300 (Version 2)
Quarter: 2025Q3

REPORT INFORMATION
  Report Type: Spontaneous
  Country: EU (occurrence: EU)
  Receive Date: 20241001
  Receipt Date: 20250814
  Transmission Date: 20251020
  Serious: Yes (Other)
  Sender: MYLAN
  Company Number: EU-MYLANLABS-2024M1087431

PATIENT
  Age: 75 Year
  Sex: Female

DRUGS (2)
  1. ALPRAZOLAM [Suspect]
     Active Substance: ALPRAZOLAM
     Indication: Hypertension
     Dosage: 1 DOSAGE FORM, BID (1 TABLET IN THE MORNING AND ONE AT NIGHT)
     Dates: start: 202405
  2. ALPRAZOLAM [Suspect]
     Active Substance: ALPRAZOLAM
     Indication: Nervousness

REACTIONS (7)
  - Dependence [Unknown]
  - Blood pressure increased [Unknown]
  - Sleep disorder [Unknown]
  - Anxiety [Unknown]
  - Disturbance in attention [Unknown]
  - Off label use [Unknown]
  - Wrong technique in product usage process [Unknown]
